FAERS Safety Report 19026167 (Version 1)
Quarter: 2021Q1

REPORT INFORMATION
  Report Type: Spontaneous
  Country: US (occurrence: US)
  Receive Date: 20210318
  Receipt Date: 20210318
  Transmission Date: 20210420
  Serious: No
  Sender: FDA-Public Use
  Company Number: US-TEVA-2021-US-1891703

PATIENT
  Sex: Male

DRUGS (1)
  1. AUSTEDO [Suspect]
     Active Substance: DEUTETRABENAZINE
     Indication: TOURETTE^S DISORDER
     Dosage: 42 MILLIGRAM DAILY; 12 MG + 9 MG TWICE A DAY
     Route: 065
     Dates: start: 20201202, end: 20210308

REACTIONS (5)
  - Drug ineffective [Unknown]
  - Thinking abnormal [Unknown]
  - Product use in unapproved indication [Unknown]
  - Dysarthria [Unknown]
  - Tic [Unknown]

NARRATIVE: CASE EVENT DATE: 20201202
